FAERS Safety Report 8020299-2 (Version None)
Quarter: 2012Q1

REPORT INFORMATION
  Report Type: 
  Country: None (occurrence: None)
  Receive Date: 20120103
  Receipt Date: 20111206
  Transmission Date: 20120608
  Serious: Yes (Other)
  Sender: FDA-Public Use
  Company Number: GR-ELI_LILLY_AND_COMPANY-GR201112002061

PATIENT
  Age: 61 Year
  Sex: Female
  Weight: 52 kg

DRUGS (8)
  1. CYCLOSPORINE [Concomitant]
     Dosage: 50 MG, QD
  2. CYCLOSPORINE [Concomitant]
     Dosage: 150 MG, QD
  3. ROSUVASTATIN [Concomitant]
     Indication: DYSLIPIDAEMIA
     Dosage: 10 MG, UNK
     Dates: end: 20110101
  4. URSODIOL [Concomitant]
     Dosage: 500 MG, QD
  5. TERIPARATIDE [Suspect]
     Indication: OSTEOPOROSIS
     Dosage: 20 UG, QD
     Dates: start: 20100705, end: 20100920
  6. MYCOPHENOLATE MOFETIL [Concomitant]
     Dosage: 750 MG, UNK
  7. CALCIUM CARBONATE [Concomitant]
     Indication: DYSLIPIDAEMIA
     Dosage: 1000 MG, UNK
  8. CHOLECALCIFEROL [Concomitant]
     Indication: DYSLIPIDAEMIA
     Dosage: 800 IU, QD

REACTIONS (1)
  - AUTOIMMUNE HEPATITIS [None]
